FAERS Safety Report 6146803-7 (Version None)
Quarter: 2009Q2

REPORT INFORMATION
  Report Type: 
  Country: None (occurrence: None)
  Receive Date: 20090407
  Receipt Date: 20090330
  Transmission Date: 20091009
  Serious: Yes (Hospitalization)
  Sender: FDA-Public Use
  Company Number: US-CELGENEUS-163-21880-09040068

PATIENT
  Sex: Female

DRUGS (1)
  1. REVLIMID [Suspect]
     Indication: MULTIPLE MYELOMA
     Route: 048
     Dates: start: 20080301, end: 20090324

REACTIONS (4)
  - HIP FRACTURE [None]
  - HUMERUS FRACTURE [None]
  - THINKING ABNORMAL [None]
  - WHITE BLOOD CELL COUNT DECREASED [None]
